FAERS Safety Report 4990555-0 (Version None)
Quarter: 2006Q2

REPORT INFORMATION
  Report Type: 
  Country: None (occurrence: None)
  Receive Date: 20060501
  Receipt Date: 20060501
  Transmission Date: 20061013
  Serious: Yes (Other)
  Sender: FDA-Public Use
  Company Number: None

PATIENT
  Age: 55 Year
  Sex: Male
  Weight: 78.0187 kg

DRUGS (1)
  1. OXYCONTIN [Suspect]
     Indication: PAIN
     Dosage: 10 MG / TWICE PER DAY BY MOUTH AS NEEDED
     Route: 048

REACTIONS (3)
  - ECONOMIC PROBLEM [None]
  - PAIN [None]
  - TREATMENT NONCOMPLIANCE [None]
